FAERS Safety Report 5489481-2 (Version None)
Quarter: 2007Q4

REPORT INFORMATION
  Report Type: 
  Country: None (occurrence: None)
  Receive Date: 20071016
  Receipt Date: 20071016
  Transmission Date: 20080405
  Serious: Yes (Hospitalization)
  Sender: FDA-Public Use
  Company Number: None

PATIENT
  Age: 59 Year
  Sex: Male

DRUGS (2)
  1. LITHIUM CARBONATE [Suspect]
     Indication: BIPOLAR DISORDER
     Dosage: 600MG  BID   PO
     Route: 048
     Dates: start: 20070923, end: 20071004
  2. LITHIUM CARBONATE [Suspect]
     Indication: MANIA
     Dosage: 600MG  BID   PO
     Route: 048
     Dates: start: 20070923, end: 20071004

REACTIONS (1)
  - THERAPEUTIC AGENT TOXICITY [None]
